FAERS Safety Report 18260970 (Version 1)
Quarter: 2020Q3

REPORT INFORMATION
  Report Type: Spontaneous
  Country: CN (occurrence: CN)
  Receive Date: 20200914
  Receipt Date: 20200914
  Transmission Date: 20201104
  Serious: Yes (Other)
  Sender: FDA-Public Use
  Company Number: CN-SUN PHARMACEUTICAL INDUSTRIES LTD-2020R1-260303

PATIENT
  Age: 60 Year
  Sex: Male

DRUGS (3)
  1. SINTILIMAB. [Suspect]
     Active Substance: SINTILIMAB
     Indication: LUNG ADENOCARCINOMA STAGE IV
     Dosage: UNK, EVERY 3 WEEKS, (5 CYCLES)
     Route: 065
     Dates: start: 201902
  2. PEMETREXED. [Suspect]
     Active Substance: PEMETREXED
     Indication: LUNG ADENOCARCINOMA STAGE IV
     Dosage: UNK, EVERY 3 WEEKS, (5 CYCLES)
     Route: 065
     Dates: start: 201902
  3. CARBOPLATIN. [Suspect]
     Active Substance: CARBOPLATIN
     Indication: LUNG ADENOCARCINOMA STAGE IV
     Dosage: UNK, EVERY 3 WEEKS, (5 CYCLES)
     Route: 065
     Dates: start: 201902

REACTIONS (2)
  - Cardiotoxicity [Unknown]
  - Skin toxicity [Unknown]
